FAERS Safety Report 8445587 (Version 3)
Quarter: 2014Q1

REPORT INFORMATION
  Report Type: Spontaneous
  Country: US (occurrence: US)
  Receive Date: 20120307
  Receipt Date: 20140120
  Transmission Date: 20141002
  Serious: Yes (Hospitalization)
  Sender: FDA-Public Use
  Company Number: US-GLAXOSMITHKLINE-A0932381A

PATIENT
  Age: 55 Year
  Sex: Male

DRUGS (2)
  1. AVANDAMET [Suspect]
     Indication: DIABETES MELLITUS
     Route: 048
     Dates: start: 200412, end: 200501
  2. AVANDIA [Suspect]
     Indication: DIABETES MELLITUS
     Dosage: 8MG PER DAY
     Route: 048
     Dates: start: 200505, end: 200703

REACTIONS (6)
  - Angina pectoris [Not Recovered/Not Resolved]
  - Catheterisation cardiac [Unknown]
  - Coronary artery bypass [Unknown]
  - Pain in extremity [Unknown]
  - Fatigue [Unknown]
  - Cardiac disorder [Unknown]
